FAERS Safety Report 15715050 (Version 1)
Quarter: 2018Q4

REPORT INFORMATION
  Report Type: Report from Study
  Country: US (occurrence: US)
  Receive Date: 20181212
  Receipt Date: 20181212
  Transmission Date: 20190205
  Serious: Yes (Other)
  Sender: FDA-Public Use
  Company Number: US-BAUSCH-BL-2018-034488

PATIENT
  Age: 68 Year
  Sex: Male

DRUGS (1)
  1. SILIQ [Suspect]
     Active Substance: BRODALUMAB
     Indication: PRODUCT USED FOR UNKNOWN INDICATION
     Dosage: 210 MG/1.5ML SQ Q2 WEEKS
     Route: 058

REACTIONS (3)
  - Skin disorder [Unknown]
  - Diverticulitis [Unknown]
  - Drug ineffective [Unknown]
